FAERS Safety Report 24772408 (Version 1)
Quarter: 2024Q4

REPORT INFORMATION
  Report Type: Spontaneous
  Country: US (occurrence: US)
  Receive Date: 20241224
  Receipt Date: 20241224
  Transmission Date: 20250115
  Serious: Yes (Disabling)
  Sender: BOEHRINGER INGELHEIM
  Company Number: US-BoehringerIngelheim-2024-BI-070204

PATIENT
  Age: 66 Year
  Sex: Male

DRUGS (2)
  1. SPIRIVA [Suspect]
     Active Substance: TIOTROPIUM BROMIDE MONOHYDRATE
     Indication: Chronic obstructive pulmonary disease
     Dates: end: 2004
  2. SPIRIVA [Suspect]
     Active Substance: TIOTROPIUM BROMIDE MONOHYDRATE
     Dates: start: 2024

REACTIONS (2)
  - Disability [Not Recovered/Not Resolved]
  - Diabetes mellitus [Unknown]
